FAERS Safety Report 4334749-6 (Version None)
Quarter: 2004Q2

REPORT INFORMATION
  Report Type: 
  Country: None (occurrence: None)
  Receive Date: 20040405
  Receipt Date: 20040324
  Transmission Date: 20050107
  Serious: Yes (Death, Hospitalization)
  Sender: FDA-Public Use
  Company Number: TPA2004A00367

PATIENT
  Age: 84 Year
  Sex: Female
  Weight: 48.9885 kg

DRUGS (9)
  1. ACTOS [Suspect]
     Indication: DIABETES MELLITUS
     Dosage: 1 IN 1 D, PER ORAL; 30 MG, 1 IN 1 D, PER ORAL
     Route: 048
     Dates: end: 20040301
  2. LANTUS [Suspect]
     Indication: DIABETES MELLITUS
     Dosage: 8 IU, QAM, SUBCUTANEOUS
     Route: 058
     Dates: start: 20010101, end: 20040301
  3. PRANDIN [Suspect]
     Indication: DIABETES MELLITUS
     Dosage: 2 MG, WITH MEALS PRN, PER ORAL
     Route: 048
     Dates: start: 20010101, end: 20040301
  4. NOVOLOG [Suspect]
     Dosage: QHS PRN, SUBCUTANEOUS
     Route: 058
     Dates: end: 20040301
  5. GLUCOPHAGE [Suspect]
     Dates: end: 20040301
  6. SYNTHROID (LEVOTHYROXINE SODIUM) (75 MICROGRAM) [Concomitant]
  7. MIACALCIN [Suspect]
  8. CELEBREX [Concomitant]
  9. ZOCOR [Concomitant]

REACTIONS (14)
  - APHAGIA [None]
  - ARTERIOSCLEROSIS [None]
  - BACK INJURY [None]
  - BLOOD GLUCOSE DECREASED [None]
  - CARDIAC ARREST [None]
  - CONTUSION [None]
  - DEMENTIA ALZHEIMER'S TYPE [None]
  - DIABETIC NEUROPATHY [None]
  - FAILURE TO THRIVE [None]
  - FALL [None]
  - FEELING ABNORMAL [None]
  - HYPOACUSIS [None]
  - SKIN ULCER [None]
  - THROMBOSIS [None]
